FAERS Safety Report 10512653 (Version 2)
Quarter: 2014Q4

REPORT INFORMATION
  Report Type: Report from Study
  Country: JP (occurrence: JP)
  Receive Date: 20141012
  Receipt Date: 20141012
  Transmission Date: 20150528
  Serious: Yes (Other)
  Sender: FDA-Public Use
  Company Number: PHHY2009JP19845

PATIENT
  Age: 64 Year
  Sex: Male

DRUGS (6)
  1. AMN107 [Suspect]
     Active Substance: NILOTINIB
     Dosage: 800 MG, DAILY
     Route: 048
     Dates: start: 20090513, end: 20090521
  2. PREDNISOLONE. [Concomitant]
     Active Substance: PREDNISOLONE
     Indication: PRODUCT USED FOR UNKNOWN INDICATION
     Dosage: 30 MG, UNK
     Route: 048
     Dates: start: 20090508, end: 20090625
  3. AMN107 [Suspect]
     Active Substance: NILOTINIB
     Dosage: 400 MG, DAILY
     Route: 048
     Dates: start: 20090417, end: 20090512
  4. AMN107 [Suspect]
     Active Substance: NILOTINIB
     Indication: CHRONIC MYELOID LEUKAEMIA
     Dosage: 800 MG, DAILY
     Route: 048
     Dates: start: 20090403, end: 20090411
  5. ONCOVIN [Concomitant]
     Active Substance: VINCRISTINE SULFATE
     Indication: PRODUCT USED FOR UNKNOWN INDICATION
     Dosage: 2 MG, UNK
     Route: 042
     Dates: start: 20090508
  6. HYDREA [Concomitant]
     Active Substance: HYDROXYUREA
     Indication: PRODUCT USED FOR UNKNOWN INDICATION
     Dosage: 500 MG, UNK
     Route: 048
     Dates: start: 20090430

REACTIONS (5)
  - Pyrexia [Recovering/Resolving]
  - Arthralgia [Recovered/Resolved]
  - Pain [Recovered/Resolved]
  - Blood glucose increased [Unknown]
  - Lipase increased [Recovered/Resolved]

NARRATIVE: CASE EVENT DATE: 20090406
